FAERS Safety Report 16419373 (Version 1)
Quarter: 2019Q2

REPORT INFORMATION
  Report Type: Spontaneous
  Country: US (occurrence: US)
  Receive Date: 20190612
  Receipt Date: 20190612
  Transmission Date: 20190711
  Serious: Yes (Life-Threatening, Other)
  Sender: FDA-Public Use
  Company Number: US-SCIEGEN PHARMACEUTICALS INC-2019SCILIT00193

PATIENT
  Age: 14 Year
  Sex: Male

DRUGS (6)
  1. FENTANYL. [Interacting]
     Active Substance: FENTANYL
  2. BUPROPION HYDROCHLORIDE. [Suspect]
     Active Substance: BUPROPION HYDROCHLORIDE
  3. DEXMEDETOMIDINE. [Concomitant]
     Active Substance: DEXMEDETOMIDINE
  4. CYPROHEPTADINE. [Interacting]
     Active Substance: CYPROHEPTADINE
  5. LORAZEPAM. [Interacting]
     Active Substance: LORAZEPAM
  6. MIDAZOLAM [Concomitant]
     Active Substance: MIDAZOLAM HYDROCHLORIDE

REACTIONS (8)
  - Status epilepticus [Recovered/Resolved]
  - Mental status changes [Recovered/Resolved]
  - Overdose [Recovered/Resolved]
  - Drug interaction [Recovered/Resolved]
  - Autonomic nervous system imbalance [Recovered/Resolved]
  - Serotonin syndrome [Recovered/Resolved]
  - Sympathomimetic effect [Recovered/Resolved]
  - Toxicity to various agents [Recovered/Resolved]
